FAERS Safety Report 7774673-X (Version None)
Quarter: 2011Q3

REPORT INFORMATION
  Report Type: 
  Country: None (occurrence: None)
  Receive Date: 20110923
  Receipt Date: 20110916
  Transmission Date: 20111222
  Serious: Yes (Hospitalization)
  Sender: FDA-Public Use
  Company Number: US-ROCHE-804323

PATIENT
  Sex: Male

DRUGS (3)
  1. RIBAVIRIN [Suspect]
     Indication: HEPATITIS C
     Dosage: FREQUENCY: DAILY
     Route: 065
     Dates: start: 20110806
  2. TELAPREVIR [Suspect]
     Indication: HEPATITIS C
     Dosage: DRUG: INCIVEK
     Route: 065
     Dates: start: 20110806
  3. PEGASYS [Suspect]
     Indication: HEPATITIS C
     Route: 065
     Dates: start: 20110806

REACTIONS (3)
  - HEPATIC ENCEPHALOPATHY [None]
  - TYPE 2 DIABETES MELLITUS [None]
  - INFLUENZA LIKE ILLNESS [None]
